FAERS Safety Report 7658318-5 (Version None)
Quarter: 2011Q3

REPORT INFORMATION
  Report Type: 
  Country: None (occurrence: None)
  Receive Date: 20110805
  Receipt Date: 20110802
  Transmission Date: 20111222
  Serious: No
  Sender: FDA-Public Use
  Company Number: US-PFIZER INC-2011176354

PATIENT
  Age: 24 Year
  Sex: Female
  Weight: 60.317 kg

DRUGS (1)
  1. DILANTIN-125 [Suspect]
     Indication: CONVULSION
     Dosage: UNK
     Dates: start: 20070301, end: 20080201

REACTIONS (1)
  - DRUG SCREEN FALSE POSITIVE [None]
